FAERS Safety Report 7980544-6 (Version None)
Quarter: 2011Q4

REPORT INFORMATION
  Report Type: 
  Country: None (occurrence: None)
  Receive Date: 20111214
  Receipt Date: 20111130
  Transmission Date: 20120403
  Serious: Yes (Other)
  Sender: FDA-Public Use
  Company Number: DE-GLAXOSMITHKLINE-D0073649A

PATIENT
  Sex: Female
  Weight: 58 kg

DRUGS (5)
  1. VOTRIENT [Suspect]
     Indication: METASTATIC RENAL CELL CARCINOMA
     Dosage: 800MG PER DAY
     Route: 048
     Dates: start: 20110520, end: 20111201
  2. TORSEMIDE [Concomitant]
     Dosage: 10MG TWICE PER DAY
     Route: 048
  3. CARVEDILOL [Concomitant]
     Indication: HYPERTENSION
     Dosage: 6.25MG TWICE PER DAY
     Route: 048
  4. RAMIPRIL [Concomitant]
     Indication: HYPERTENSION
     Dosage: 2.5MG PER DAY
     Route: 048
  5. PANTOPRAZOLE SODIUM [Concomitant]
     Dosage: 40MG AT NIGHT
     Route: 048

REACTIONS (3)
  - PERICARDIAL EFFUSION [None]
  - HYPOTENSION [None]
  - FATIGUE [None]
